FAERS Safety Report 20683313 (Version 1)
Quarter: 2022Q2

REPORT INFORMATION
  Report Type: Spontaneous
  Country: None (occurrence: A1)
  Receive Date: 20220407
  Receipt Date: 20220407
  Transmission Date: 20220721
  Serious: Yes (Hospitalization, Other)
  Sender: FDA-Public Use
  Company Number: A1-Acella Pharmaceuticals, LLC-2127487

PATIENT
  Age: 72 Year
  Sex: Female

DRUGS (7)
  1. DOXYCYCLINE [Suspect]
     Active Substance: DOXYCYCLINE
     Indication: Gram stain positive
     Route: 042
  2. ALBUTEROL [Suspect]
     Active Substance: ALBUTEROL
     Route: 065
  3. DEXAMETHASONE [Suspect]
     Active Substance: DEXAMETHASONE
     Route: 065
  4. ENOXAPARIN SODIUM [Suspect]
     Active Substance: ENOXAPARIN SODIUM
     Route: 065
  5. MEROPENEM [Suspect]
     Active Substance: MEROPENEM
     Route: 065
  6. VANCOMYCIN HYDROCHLORIDE [Suspect]
     Active Substance: VANCOMYCIN HYDROCHLORIDE
     Route: 065
  7. NOREPINEPHRINE [Suspect]
     Active Substance: NOREPINEPHRINE
     Route: 065

REACTIONS (14)
  - Compartment syndrome [Unknown]
  - Asthenia [Unknown]
  - Dyspnoea [Unknown]
  - Cough [Unknown]
  - Pneumonia bacterial [Unknown]
  - COVID-19 pneumonia [Unknown]
  - Sepsis [Unknown]
  - Acute respiratory failure [Unknown]
  - Hypotension [Unknown]
  - Peripheral swelling [Unknown]
  - Blister [Unknown]
  - Pain in extremity [Unknown]
  - Haematoma [Unknown]
  - Joint range of motion decreased [Unknown]
